FAERS Safety Report 6745112-2 (Version None)
Quarter: 2010Q2

REPORT INFORMATION
  Report Type: 
  Country: None (occurrence: None)
  Receive Date: 20100527
  Receipt Date: 20100514
  Transmission Date: 20101027
  Serious: Yes (Congenital Anomaly)
  Sender: FDA-Public Use
  Company Number: BE-WATSON-2010-07056

PATIENT

DRUGS (1)
  1. CABERGOLINE [Suspect]
     Indication: HYPERPROLACTINAEMIA
     Dosage: 6.0 MG, UNKNOWN
     Route: 064

REACTIONS (1)
  - HYDRONEPHROSIS [None]
